FAERS Safety Report 24425821 (Version 1)
Quarter: 2024Q4

REPORT INFORMATION
  Report Type: Spontaneous
  Country: US (occurrence: US)
  Receive Date: 20241011
  Receipt Date: 20241011
  Transmission Date: 20250115
  Serious: Yes (Hospitalization, Other)
  Sender: INSMED
  Company Number: US-INSMED, INC.-2024-03928-US

PATIENT

DRUGS (1)
  1. ARIKAYCE [Suspect]
     Active Substance: AMIKACIN
     Indication: Product used for unknown indication
     Dosage: UNK, UNK
     Route: 055

REACTIONS (7)
  - Oxygen therapy [Recovered/Resolved]
  - Lung disorder [Not Recovered/Not Resolved]
  - Bronchiectasis [Unknown]
  - Haemophilus infection [Unknown]
  - Weight decreased [Unknown]
  - Blood glucose increased [Unknown]
  - Drug resistance [Not Recovered/Not Resolved]
